FAERS Safety Report 21822039 (Version 1)
Quarter: 2023Q1

REPORT INFORMATION
  Report Type: Spontaneous
  Country: DE (occurrence: DE)
  Receive Date: 20230105
  Receipt Date: 20230105
  Transmission Date: 20230417
  Serious: Yes (Life-Threatening, Hospitalization, Other)
  Sender: FDA-Public Use
  Company Number: DE-STERISCIENCE B.V.-2022-ST-000543

PATIENT
  Age: 54 Year
  Sex: Female

DRUGS (2)
  1. METOPROLOL [Suspect]
     Active Substance: METOPROLOL
     Indication: Supraventricular tachycardia
     Dosage: 5 MILLIGRAM
     Route: 065
  2. LEVOTHYROXINE [Concomitant]
     Active Substance: LEVOTHYROXINE
     Indication: Goitre
     Dosage: 1000 MICROGRAM, QD
     Route: 065

REACTIONS (4)
  - Cardiomyopathy [Recovered/Resolved]
  - Condition aggravated [Recovered/Resolved]
  - Cardiogenic shock [Recovered/Resolved]
  - Off label use [Unknown]
